FAERS Safety Report 5407306-8 (Version None)
Quarter: 2007Q3

REPORT INFORMATION
  Report Type: 
  Country: None (occurrence: None)
  Receive Date: 20070807
  Receipt Date: 20070802
  Transmission Date: 20080115
  Serious: Yes (Other)
  Sender: FDA-Public Use
  Company Number: US-ASTRAZENECA-2007UW12212

PATIENT
  Age: 588 Month
  Sex: Female
  Weight: 77.3 kg

DRUGS (3)
  1. SEROQUEL [Suspect]
     Indication: SCHIZOPHRENIA
     Route: 048
     Dates: start: 19990901, end: 20030301
  2. SEROQUEL [Suspect]
     Indication: DRUG INEFFECTIVE
     Route: 048
     Dates: start: 19990901, end: 20030301
  3. ABILIFY [Concomitant]
     Dates: start: 20030101

REACTIONS (5)
  - GLAUCOMA [None]
  - HEPATITIS C [None]
  - NEUROPATHY [None]
  - OBESITY [None]
  - TYPE 2 DIABETES MELLITUS [None]
